FAERS Safety Report 13745680 (Version 1)
Quarter: 2017Q3

REPORT INFORMATION
  Report Type: Spontaneous
  Country: US (occurrence: US)
  Receive Date: 20170712
  Receipt Date: 20170712
  Transmission Date: 20171127
  Serious: Yes (Other)
  Sender: FDA-Public Use
  Company Number: US-TEVA-786382USA

PATIENT
  Age: 38 Year
  Sex: Female

DRUGS (5)
  1. TOPOTECAN [Concomitant]
     Active Substance: TOPOTECAN HYDROCHLORIDE
     Indication: SMALL CELL CARCINOMA OF THE CERVIX
     Dosage: 0.75 MG/M2 ON DAY 1,2 AND 3
     Route: 042
  2. NIVOLUMAB [Suspect]
     Active Substance: NIVOLUMAB
     Indication: SMALL CELL CARCINOMA OF THE CERVIX
     Dosage: 3 MG/KG EVERY 2 WEEKS (6 DOSES)
     Route: 042
  3. PACLITAXEL. [Concomitant]
     Active Substance: PACLITAXEL
     Indication: SMALL CELL CARCINOMA OF THE CERVIX
     Dosage: 135 MG/M2 (2 CYCLES ON DAY 1)
     Route: 042
  4. CISPLATIN. [Suspect]
     Active Substance: CISPLATIN
     Indication: SMALL CELL CARCINOMA OF THE CERVIX
     Dosage: 80 MG/M2 ON DAY 1 (6 CYCLES)
     Route: 042
  5. ETOPOSIDE. [Suspect]
     Active Substance: ETOPOSIDE
     Indication: SMALL CELL CARCINOMA OF THE CERVIX
     Dosage: 100 MG/M2 ON DAY 1,2 AND 3 (6 CYCLES)
     Route: 042

REACTIONS (6)
  - Off label use [Unknown]
  - Dry eye [Unknown]
  - Fatigue [Unknown]
  - Nausea [Unknown]
  - Ocular hypertension [Unknown]
  - Pancytopenia [Recovered/Resolved]
